FAERS Safety Report 7547141 (Version 3)
Quarter: 2014Q1

REPORT INFORMATION
  Report Type: Spontaneous
  Country: US (occurrence: US)
  Receive Date: 20100819
  Receipt Date: 20140331
  Transmission Date: 20141002
  Serious: Yes (Hospitalization, Other)
  Sender: FDA-Public Use
  Company Number: US-ALEXION-A201000956

PATIENT
  Age: 44 Year
  Sex: Female

DRUGS (9)
  1. SOLIRIS 300MG [Suspect]
     Indication: PAROXYSMAL NOCTURNAL HAEMOGLOBINURIA
     Dosage: 600 MG, QWX4
     Route: 042
     Dates: start: 200902
  2. SOLIRIS 300MG [Suspect]
     Dosage: 900 MG, Q2W
     Route: 042
     Dates: start: 20090402
  3. SOLIRIS 300MG [Suspect]
     Dosage: 900 MG, UNK
     Route: 042
     Dates: start: 20100612, end: 20100612
  4. SOLIRIS 300MG [Suspect]
     Dosage: 900 MG, UNK
     Route: 042
     Dates: start: 20100624, end: 20100624
  5. SOLIRIS 300MG [Suspect]
     Dosage: 900 MG, UNK
     Route: 042
     Dates: start: 20100709, end: 20100709
  6. SOLIRIS 300MG [Suspect]
     Dosage: 900 MG, UNK
     Route: 042
     Dates: start: 20100722, end: 20100722
  7. FOLIC ACID [Concomitant]
     Indication: PAROXYSMAL NOCTURNAL HAEMOGLOBINURIA
     Dosage: UNK
     Route: 048
  8. BENADRYL                           /00000402/ [Concomitant]
  9. TYLENOL                            /00020001/ [Concomitant]
     Dosage: 600 MG, SINGLE PRIOR TO ^SOLIRIS INFUSION^
     Route: 048
     Dates: start: 20100805

REACTIONS (7)
  - Transfusion reaction [Unknown]
  - Staphylococcal bacteraemia [Unknown]
  - Device related sepsis [Unknown]
  - Deep vein thrombosis [Unknown]
  - Disseminated intravascular coagulation [Unknown]
  - Packed red blood cell transfusion [Unknown]
  - Urinary tract infection [Unknown]
